FAERS Safety Report 12055616 (Version 1)
Quarter: 2016Q1

REPORT INFORMATION
  Report Type: Spontaneous
  Country: NL (occurrence: NL)
  Receive Date: 20160209
  Receipt Date: 20160209
  Transmission Date: 20160526
  Serious: Yes (Hospitalization, Other)
  Sender: FDA-Public Use
  Company Number: NL-BAXALTA-2016BLT000671

PATIENT
  Age: 65 Year
  Sex: Female

DRUGS (3)
  1. HYQVIA [Suspect]
     Active Substance: HUMAN IMMUNOGLOBULIN G\HYALURONIDASE RECOMBINANT HUMAN
     Indication: PRODUCT USED FOR UNKNOWN INDICATION
     Dosage: 35 G, EVERY 4 WK
     Route: 065
     Dates: start: 20151222
  2. HYQVIA [Suspect]
     Active Substance: HUMAN IMMUNOGLOBULIN G\HYALURONIDASE RECOMBINANT HUMAN
     Dosage: UNK
  3. HYQVIA [Suspect]
     Active Substance: HUMAN IMMUNOGLOBULIN G\HYALURONIDASE RECOMBINANT HUMAN
     Dosage: 35 G, EVERY 4 WK
     Route: 065
     Dates: start: 201510

REACTIONS (3)
  - Chronic obstructive pulmonary disease [Recovering/Resolving]
  - Metapneumovirus infection [Recovering/Resolving]
  - Sense of oppression [Recovering/Resolving]

NARRATIVE: CASE EVENT DATE: 201601
